FAERS Safety Report 23280301 (Version 2)
Quarter: 2024Q1

REPORT INFORMATION
  Report Type: Report from Study
  Country: JP (occurrence: JP)
  Receive Date: 20231210
  Receipt Date: 20240205
  Transmission Date: 20240410
  Serious: Yes (Death)
  Sender: FDA-Public Use
  Company Number: JP-JNJFOC-20231212914

PATIENT
  Age: 82 Year
  Sex: Female

DRUGS (9)
  1. BOSENTAN [Suspect]
     Active Substance: BOSENTAN
     Indication: Raynaud^s phenomenon
     Dosage: IN THE MORNING AND EVENING
     Route: 048
     Dates: start: 20200303, end: 20200316
  2. BOSENTAN [Suspect]
     Active Substance: BOSENTAN
     Indication: Peripheral circulatory failure
     Route: 048
     Dates: start: 20200325, end: 20210417
  3. OXYGEN [Concomitant]
     Active Substance: OXYGEN
     Dosage: DOSE UNKNOWN
     Route: 055
  4. CILNIDIPINE [Concomitant]
     Active Substance: CILNIDIPINE
     Indication: Systemic scleroderma
     Route: 048
     Dates: start: 20200225, end: 20210417
  5. SARPOGRELATE HYDROCHLORIDE [Concomitant]
     Active Substance: SARPOGRELATE HYDROCHLORIDE
     Indication: Systemic scleroderma
     Route: 048
     Dates: start: 20200227, end: 20210417
  6. CILOSTAZOL [Concomitant]
     Active Substance: CILOSTAZOL
     Indication: Systemic scleroderma
     Route: 048
     Dates: start: 20200229, end: 20200310
  7. CILOSTAZOL [Concomitant]
     Active Substance: CILOSTAZOL
     Route: 048
     Dates: start: 20200311, end: 20210209
  8. ISOSORBIDE DINITRATE [Concomitant]
     Active Substance: ISOSORBIDE DINITRATE
     Indication: Systemic scleroderma
     Route: 062
     Dates: start: 20200327, end: 20210417
  9. ALPROSTADIL [Concomitant]
     Active Substance: ALPROSTADIL
     Indication: Systemic scleroderma
     Route: 042
     Dates: start: 20200318, end: 20200408

REACTIONS (3)
  - Intestinal obstruction [Fatal]
  - Liver disorder [Recovered/Resolved]
  - Off label use [Unknown]

NARRATIVE: CASE EVENT DATE: 20200303
